FAERS Safety Report 14110107 (Version 1)
Quarter: 2017Q4

REPORT INFORMATION
  Report Type: Other
  Country: CA (occurrence: CA)
  Receive Date: 20171020
  Receipt Date: 20171020
  Transmission Date: 20180321
  Serious: Yes (Hospitalization)
  Sender: FDA-Public Use
  Company Number: CA-APOTEX-2017AP019847

PATIENT
  Sex: Male

DRUGS (1)
  1. APO-HALOPERIDOL LA [Suspect]
     Active Substance: HALOPERIDOL
     Indication: PRODUCT USED FOR UNKNOWN INDICATION
     Dosage: UNK
     Route: 030

REACTIONS (3)
  - Laryngospasm [Recovered/Resolved]
  - Lip swelling [Recovered/Resolved]
  - Torticollis [Recovered/Resolved]
